FAERS Safety Report 8358463-5 (Version None)
Quarter: 2012Q2

REPORT INFORMATION
  Report Type: 
  Country: None (occurrence: None)
  Receive Date: 20120514
  Receipt Date: 20120430
  Transmission Date: 20120825
  Serious: Yes (Other)
  Sender: FDA-Public Use
  Company Number: PHHY2012FR039953

PATIENT

DRUGS (5)
  1. MYCOPHENOLATE MOFETIL [Suspect]
     Dosage: 720 MG, UNK
     Route: 048
  2. ANTI-IL-2 RECEPTOR ANTIBODIES [Concomitant]
  3. CYCLOSPORINE [Suspect]
     Indication: RENAL TRANSPLANT
  4. CORTICOSTEROIDS [Concomitant]
     Dosage: 5-10 MG/DAY
  5. EVEROLIMUS [Suspect]
     Indication: RENAL TRANSPLANT

REACTIONS (1)
  - APHTHOUS STOMATITIS [None]
